FAERS Safety Report 8836148 (Version 2)
Quarter: 2013Q1

REPORT INFORMATION
  Report Type: Spontaneous
  Country: RO (occurrence: RO)
  Receive Date: 20121011
  Receipt Date: 20130122
  Transmission Date: 20140127
  Serious: Yes (Other)
  Sender: FDA-Public Use
  Company Number: RO-ROCHE-1142896

PATIENT
  Sex: Male

DRUGS (2)
  1. MABTHERA [Suspect]
     Indication: LYMPHOMA
     Route: 065
     Dates: start: 201011, end: 201203
  2. ROFERON-A [Suspect]
     Indication: LYMPHOMA
     Route: 065
     Dates: start: 201207, end: 201210

REACTIONS (3)
  - Hepatitis B [Not Recovered/Not Resolved]
  - Transaminases increased [Recovered/Resolved]
  - Hepatocellular injury [Unknown]
